FAERS Safety Report 12475458 (Version 14)
Quarter: 2017Q1

REPORT INFORMATION
  Report Type: Report from Study
  Country: CA (occurrence: CA)
  Receive Date: 20160617
  Receipt Date: 20170303
  Transmission Date: 20170428
  Serious: Yes (Other)
  Sender: FDA-Public Use
  Company Number: CA-JNJFOC-20160607894

PATIENT
  Age: 59 Year
  Sex: Female

DRUGS (1)
  1. IMBRUVICA [Suspect]
     Active Substance: IBRUTINIB
     Indication: WALDENSTROM^S MACROGLOBULINAEMIA
     Route: 048
     Dates: start: 20160603

REACTIONS (20)
  - Dry skin [Not Recovered/Not Resolved]
  - Dry mouth [Unknown]
  - Pruritus generalised [Recovered/Resolved]
  - Fatigue [Unknown]
  - Increased appetite [Unknown]
  - Nasopharyngitis [Recovered/Resolved]
  - Pruritus [Not Recovered/Not Resolved]
  - Muscle spasms [Recovering/Resolving]
  - Feeling abnormal [Unknown]
  - Haemoglobin decreased [Recovered/Resolved]
  - Platelet count decreased [Recovered/Resolved]
  - Epistaxis [Not Recovered/Not Resolved]
  - Myalgia [Recovered/Resolved]
  - Erythema [Recovered/Resolved]
  - Pain in extremity [Unknown]
  - Aphthous ulcer [Recovered/Resolved]
  - Flatulence [Recovered/Resolved]
  - Acne [Recovered/Resolved]
  - White blood cell count abnormal [Recovered/Resolved]
  - Immunoglobulins abnormal [Recovering/Resolving]

NARRATIVE: CASE EVENT DATE: 201606
